FAERS Safety Report 16652900 (Version 1)
Quarter: 2019Q3

REPORT INFORMATION
  Report Type: Spontaneous
  Country: DE (occurrence: DE)
  Receive Date: 20190731
  Receipt Date: 20190731
  Transmission Date: 20191004
  Serious: Yes (Other)
  Sender: FDA-Public Use
  Company Number: DE-AMGEN-DEUNI2019085006

PATIENT
  Age: 45 Year
  Sex: Female

DRUGS (3)
  1. REBIF [Suspect]
     Active Substance: INTERFERON BETA-1A
     Indication: MULTIPLE SCLEROSIS
     Dosage: 22 MICROGRAM, 3 TIMES/WK (0.33 WEEK)
     Route: 065
  2. BRONCHICUM [AMMONIA;ASPIDOSPERMA QUEBRACHO-BLANCO BARK;CIMICIFUGA RACE [Concomitant]
  3. TRASTUZUMAB. [Suspect]
     Active Substance: TRASTUZUMAB
     Indication: BREAST CANCER
     Dosage: UNK
     Route: 065
     Dates: start: 201811

REACTIONS (3)
  - Breast cancer [Not Recovered/Not Resolved]
  - Type 2 diabetes mellitus [Unknown]
  - Drug interaction [Unknown]

NARRATIVE: CASE EVENT DATE: 201811
